FAERS Safety Report 7124119-X (Version None)
Quarter: 2010Q4

REPORT INFORMATION
  Report Type: 
  Country: None (occurrence: None)
  Receive Date: 20101126
  Receipt Date: 20101124
  Transmission Date: 20110411
  Serious: Yes (Death, Hospitalization)
  Sender: FDA-Public Use
  Company Number: PHHY2010BR79817

PATIENT
  Sex: Male
  Weight: 80 kg

DRUGS (2)
  1. EXELON [Suspect]
     Indication: DEMENTIA ALZHEIMER'S TYPE
     Dosage: UNK
     Route: 062
     Dates: start: 20100801
  2. DAFLON [Concomitant]
     Dosage: 500, UNK
     Route: 048

REACTIONS (2)
  - DEATH [None]
  - RESPIRATORY DISORDER [None]
